FAERS Safety Report 13547757 (Version 1)
Quarter: 2017Q2

REPORT INFORMATION
  Report Type: Spontaneous
  Country: US (occurrence: US)
  Receive Date: 20170516
  Receipt Date: 20170516
  Transmission Date: 20170830
  Serious: No
  Sender: FDA-Public Use
  Company Number: US-BAUSCH-BL-2017-002566

PATIENT
  Age: 60 Year
  Sex: Male
  Weight: 77.18 kg

DRUGS (2)
  1. EXFORGE [Concomitant]
     Active Substance: AMLODIPINE BESYLATE\VALSARTAN
     Indication: HYPERTENSION
     Dosage: 10/325 MG IN MORNING
     Route: 048
     Dates: start: 2014
  2. LATANOPROST OPHTHALMIC SOLUTION 0.005% [Suspect]
     Active Substance: LATANOPROST
     Indication: INTRAOCULAR PRESSURE DECREASED
     Dosage: 1 DROP IN BOTH EYES EVERY NIGHT AT BED TIME
     Route: 047
     Dates: start: 2014

REACTIONS (1)
  - Eye swelling [Not Recovered/Not Resolved]

NARRATIVE: CASE EVENT DATE: 2016
